FAERS Safety Report 6841410-2 (Version None)
Quarter: 2010Q3

REPORT INFORMATION
  Report Type: 
  Country: None (occurrence: None)
  Receive Date: 20100714
  Receipt Date: 20070706
  Transmission Date: 20110219
  Serious: No
  Sender: FDA-Public Use
  Company Number: US-PFIZER INC-2007057391

PATIENT
  Sex: Female
  Weight: 86.363 kg

DRUGS (7)
  1. CHANTIX [Suspect]
     Indication: SMOKING CESSATION THERAPY
     Dates: start: 20070627
  2. DILACOR XR [Concomitant]
     Dosage: 250 MG
  3. MAXZIDE [Concomitant]
     Dosage: 25 MG
  4. ASACOL [Concomitant]
  5. ACETYLSALICYLIC ACID [Concomitant]
  6. SIMVASTATIN [Concomitant]
     Dosage: 40 MG
  7. PLAVIX [Concomitant]

REACTIONS (2)
  - PRURITUS [None]
  - RASH MACULAR [None]
